FAERS Safety Report 12511623 (Version 2)
Quarter: 2016Q3

REPORT INFORMATION
  Report Type: Spontaneous
  Country: FR (occurrence: FR)
  Receive Date: 20160630
  Receipt Date: 20160714
  Transmission Date: 20161109
  Serious: Yes (Disabling, Other)
  Sender: FDA-Public Use
  Company Number: FR-ASTRAZENECA-2016SE70750

PATIENT
  Age: 30 Year
  Sex: Male

DRUGS (6)
  1. SERTRALINE [Concomitant]
     Active Substance: SERTRALINE HYDROCHLORIDE
     Indication: MENTAL DISORDER
     Route: 048
     Dates: start: 20160524
  2. PARACETAMOL [Concomitant]
     Active Substance: ACETAMINOPHEN
     Dosage: AS REQUIRED
  3. XEROQUEL [Suspect]
     Active Substance: QUETIAPINE FUMARATE
     Indication: MENTAL DISORDER
     Route: 048
     Dates: start: 2013
  4. XEROQUEL [Suspect]
     Active Substance: QUETIAPINE FUMARATE
     Indication: MENTAL DISORDER
     Route: 048
     Dates: start: 20160517, end: 20160524
  5. SERTRALINE [Concomitant]
     Active Substance: SERTRALINE HYDROCHLORIDE
     Indication: MENTAL DISORDER
     Route: 048
     Dates: end: 20160523
  6. IBUPROFENE [Concomitant]
     Active Substance: IBUPROFEN
     Dosage: AS REQUIRED

REACTIONS (6)
  - Myalgia [Recovered/Resolved]
  - Nightmare [Recovered/Resolved]
  - Anxiety [Recovered/Resolved]
  - Suicidal ideation [Recovered/Resolved]
  - Accommodation disorder [Recovered/Resolved]
  - Fatigue [Recovered/Resolved]

NARRATIVE: CASE EVENT DATE: 201601
